FAERS Safety Report 17139706 (Version 6)
Quarter: 2020Q3

REPORT INFORMATION
  Report Type: Report from Study
  Country: DE (occurrence: DE)
  Receive Date: 20191211
  Receipt Date: 20200918
  Transmission Date: 20201102
  Serious: Yes (Hospitalization, Other)
  Sender: FDA-Public Use
  Company Number: DE-GILEAD-2019-0442001

PATIENT
  Age: 65 Year
  Sex: Male
  Weight: 62 kg

DRUGS (12)
  1. SOFOSBUVIR W/VELPATASVIR [Suspect]
     Active Substance: SOFOSBUVIR\VELPATASVIR
     Indication: CHRONIC HEPATITIS C
     Dosage: 1 DOSAGE FORM, QD
     Route: 048
     Dates: start: 20190805, end: 20191103
  2. VITAMIN B [Concomitant]
     Active Substance: VITAMIN B
     Dosage: UNK
  3. PROGRAF [Concomitant]
     Active Substance: TACROLIMUS
     Dosage: 40 MG, UNK
     Dates: start: 20191010
  4. NEXIUM I.V. [Concomitant]
     Active Substance: ESOMEPRAZOLE SODIUM
     Dosage: 20 MG, UNK
  5. OMNIFLORA [Concomitant]
     Dosage: UNK
  6. VIGANTOLETTEN [Concomitant]
     Active Substance: CHOLECALCIFEROL
     Dosage: 1000 IU, UNK
  7. RAMIPRIL. [Concomitant]
     Active Substance: RAMIPRIL
     Dosage: 10 MG, UNK
  8. PREDNISON [Concomitant]
     Active Substance: PREDNISONE
     Dosage: 5 MG, UNK
  9. SPIRONOLACTONE. [Concomitant]
     Active Substance: SPIRONOLACTONE
  10. BISOPROLOL [Concomitant]
     Active Substance: BISOPROLOL
     Dosage: 5 MG, UNK
  11. PANTOPRAZOL [PANTOPRAZOLE] [Concomitant]
     Active Substance: PANTOPRAZOLE
     Dosage: 40 MG, UNK
  12. UDCA [Concomitant]
     Active Substance: URSODIOL
     Dosage: 1500 MG, UNK

REACTIONS (6)
  - High frequency ablation [Recovered/Resolved]
  - Nocturia [Unknown]
  - Chest pain [Unknown]
  - Endoscopic retrograde cholangiopancreatography [Recovered/Resolved]
  - Endoscopic retrograde cholangiopancreatography [Recovered/Resolved]
  - Liver transplant [Recovering/Resolving]

NARRATIVE: CASE EVENT DATE: 20190822
